FAERS Safety Report 7562055-5 (Version None)
Quarter: 2011Q2

REPORT INFORMATION
  Report Type: 
  Country: None (occurrence: None)
  Receive Date: 20110622
  Receipt Date: 20101208
  Transmission Date: 20111010
  Serious: Yes (Other)
  Sender: FDA-Public Use
  Company Number: PHHY2010DE92229

PATIENT
  Age: 75 Year
  Sex: Female

DRUGS (2)
  1. ZOLEDRONIC ACID [Suspect]
     Indication: BREAST CANCER METASTATIC
     Dosage: UNK UKN, UNK
     Route: 042
  2. CHEMOTHERAPEUTICS NOS [Concomitant]
     Indication: BREAST CANCER METASTATIC

REACTIONS (2)
  - DECUBITUS ULCER [None]
  - OSTEONECROSIS OF JAW [None]
